FAERS Safety Report 5362284-5 (Version None)
Quarter: 2007Q2

REPORT INFORMATION
  Report Type: 
  Country: None (occurrence: None)
  Receive Date: 20070619
  Receipt Date: 20070614
  Transmission Date: 20071010
  Serious: Yes (Other)
  Sender: FDA-Public Use
  Company Number: A0656586A

PATIENT
  Age: 82 Year
  Sex: Male

DRUGS (12)
  1. AVANDIA [Suspect]
     Dosage: 4MG PER DAY
     Route: 048
     Dates: start: 20050101, end: 20070601
  2. GLUCOTROL [Concomitant]
  3. COUMADIN [Concomitant]
  4. FLOMAX [Concomitant]
  5. LIPITOR [Concomitant]
  6. ENALAPRIL MALEATE [Concomitant]
  7. COREG [Concomitant]
  8. VITAMIN A [Concomitant]
  9. ZINC [Concomitant]
  10. VITAMIN E [Concomitant]
  11. ASCORBIC ACID [Concomitant]
  12. SIMRON [Concomitant]
     Route: 048

REACTIONS (5)
  - CATARACT OPERATION [None]
  - DYSPNOEA [None]
  - FATIGUE [None]
  - IMPLANTABLE DEFIBRILLATOR INSERTION [None]
  - THROMBOSIS [None]
